FAERS Safety Report 14892777 (Version 1)
Quarter: 2018Q2

REPORT INFORMATION
  Report Type: Spontaneous
  Country: US (occurrence: US)
  Receive Date: 20180426
  Receipt Date: 20180426
  Transmission Date: 20180711
  Serious: Yes (Hospitalization)
  Sender: FDA-Public Use
  Company Number: None

PATIENT
  Age: 58 Year
  Sex: Female
  Weight: 93.44 kg

DRUGS (1)
  1. PEMBROLIZUMAB. [Suspect]
     Active Substance: PEMBROLIZUMAB
     Indication: OESOPHAGEAL ADENOCARCINOMA
     Dosage: OTHER FREQUENCY:EVERY 21 DAYS;?
     Route: 042
     Dates: start: 20180403, end: 20180424

REACTIONS (4)
  - Headache [None]
  - Nausea [None]
  - Vomiting [None]
  - Cerebral small vessel ischaemic disease [None]

NARRATIVE: CASE EVENT DATE: 20180425
